FAERS Safety Report 11865644 (Version 1)
Quarter: 2015Q4

REPORT INFORMATION
  Report Type: Not Available
  Country: DE (occurrence: BR)
  Receive Date: 20151223
  Receipt Date: 20151223
  Transmission Date: 20160305
  Serious: Yes (Other)
  Sender: FDA-Public Use
  Company Number: DE-ANIPHARMA-2015-BR-000001

PATIENT
  Age: 34 Year
  Sex: Male
  Weight: 95 kg

DRUGS (1)
  1. FLUVOXAMINE MALEATE 50 MG TABLETS [Suspect]
     Active Substance: FLUVOXAMINE MALEATE
     Dosage: 50 MG DAILY AT NIGHT
     Route: 048
     Dates: start: 20131001

REACTIONS (1)
  - Diabetes mellitus [Unknown]
